FAERS Safety Report 6483100-4 (Version None)
Quarter: 2009Q4

REPORT INFORMATION
  Report Type: 
  Country: None (occurrence: None)
  Receive Date: 20091209
  Receipt Date: 20091202
  Transmission Date: 20100525
  Serious: Yes (Other)
  Sender: FDA-Public Use
  Company Number: IT-ROCHE-672246

PATIENT
  Sex: Male

DRUGS (4)
  1. RIBAVIRIN [Suspect]
     Indication: HEPATITIS C
     Dosage: ROUTE: ORAL SOLUTION, FREQUENCY: DAILY
     Route: 048
     Dates: start: 20081015
  2. RIBAVIRIN [Suspect]
     Dosage: THE DRUG WAS REDUCED AND THEN PERMANENTLY DISCONTINUED.
     Route: 048
     Dates: end: 20090326
  3. PEG-INTRON [Suspect]
     Indication: HEPATITIS C
     Dosage: DOSE: 180 MCG; FREQUENCY: WEEKLY.
     Route: 058
     Dates: start: 20081015
  4. PEG-INTRON [Suspect]
     Dosage: THE DRUG WAS REDUCED AND THEN PERMANENTLY DISCONTINUED.
     Route: 058
     Dates: end: 20090326

REACTIONS (1)
  - RAYNAUD'S PHENOMENON [None]
